FAERS Safety Report 24324164 (Version 1)
Quarter: 2024Q3

REPORT INFORMATION
  Report Type: Spontaneous
  Country: US (occurrence: None)
  Receive Date: 20240915
  Receipt Date: 20240915
  Transmission Date: 20241016
  Serious: No
  Sender: Public
  Company Number: None

PATIENT
  Age: 37 Year
  Sex: Female

DRUGS (6)
  1. NOVOLIN N [Suspect]
     Active Substance: INSULIN HUMAN
     Indication: Gestational diabetes
     Dosage: OTHER QUANTITY : 1 6 UNITS INJECTED?FREQUENCY : AT BEDTIME?OTHER ROUTE : INJECTED INTO SUBCUTANEOUS
     Route: 050
     Dates: start: 20240912, end: 20240913
  2. Dexcom G7 [Concomitant]
  3. LABETALOL [Concomitant]
     Active Substance: LABETALOL\LABETALOL HYDROCHLORIDE
  4. XYZAL [Concomitant]
  5. BUDESONIDE [Concomitant]
     Active Substance: BUDESONIDE
  6. One a day woman^s prenatal advanced vitamins [Concomitant]

REACTIONS (5)
  - Injection site pain [None]
  - Nausea [None]
  - Joint swelling [None]
  - Lip swelling [None]
  - Headache [None]

NARRATIVE: CASE EVENT DATE: 20240912
